FAERS Safety Report 9941972 (Version 1)
Quarter: 2014Q1

REPORT INFORMATION
  Report Type: Report from Study
  Country: US (occurrence: US)
  Receive Date: 20140303
  Receipt Date: 20140303
  Transmission Date: 20141002
  Serious: No
  Sender: FDA-Public Use
  Company Number: US-ABBVIE-13P-163-1038938-00

PATIENT
  Age: 49 Year
  Sex: Female

DRUGS (3)
  1. HUMIRA [Suspect]
     Indication: PSORIASIS
     Route: 058
     Dates: start: 20120906
  2. SIMVASTATIN [Concomitant]
     Indication: BLOOD CHOLESTEROL
  3. VITAMIN D3 [Concomitant]
     Indication: VITAMIN D DECREASED
     Dosage: DAILY

REACTIONS (1)
  - Haemorrhoids [Not Recovered/Not Resolved]
